FAERS Safety Report 25847343 (Version 1)
Quarter: 2025Q3

REPORT INFORMATION
  Report Type: Report from Study
  Country: US (occurrence: US)
  Receive Date: 20250925
  Receipt Date: 20250925
  Transmission Date: 20251020
  Serious: No
  Sender: SUNOVION
  Company Number: US-SUMITOMO PHARMA SWITZERLAND GMBH-2025SPA012054

PATIENT
  Age: 74 Year
  Sex: Male

DRUGS (21)
  1. ORGOVYX [Suspect]
     Active Substance: RELUGOLIX
     Indication: Prostate cancer
     Route: 048
  2. ORGOVYX [Suspect]
     Active Substance: RELUGOLIX
     Route: 048
  3. ACETAMINOPHEN [Concomitant]
     Active Substance: ACETAMINOPHEN
  4. ATORVASTATIN CALCIUM [Concomitant]
     Active Substance: ATORVASTATIN CALCIUM
  5. Turmeric + black pepper [Concomitant]
  6. IBUPROFEN [Concomitant]
     Active Substance: IBUPROFEN
  7. PRASTERONE [Concomitant]
     Active Substance: PRASTERONE
  8. ELIQUIS [Concomitant]
     Active Substance: APIXABAN
  9. GINKGO [Concomitant]
     Active Substance: GINKGO
  10. LEVOTHYROXINE SODIUM [Concomitant]
     Active Substance: LEVOTHYROXINE SODIUM
  11. LIOTHYRONINE SODIUM [Concomitant]
     Active Substance: LIOTHYRONINE SODIUM
  12. LISINOPRIL [Concomitant]
     Active Substance: LISINOPRIL
  13. METOPROLOL SUCCINATE [Concomitant]
     Active Substance: METOPROLOL SUCCINATE
  14. VITAMINS [Concomitant]
     Active Substance: VITAMINS
  15. NIACIN [Concomitant]
     Active Substance: NIACIN
  16. OXYBUTYNIN [Concomitant]
     Active Substance: OXYBUTYNIN
  17. LORATADINE [Concomitant]
     Active Substance: LORATADINE
  18. CYANOCOBALAMIN\DEXPANTHENOL\NIACINAMIDE\PYRIDOXINE HYDROCHLORIDE\RIBOF [Concomitant]
     Active Substance: CYANOCOBALAMIN\DEXPANTHENOL\NIACINAMIDE\PYRIDOXINE HYDROCHLORIDE\RIBOFLAVIN 5^-PHOSPHATE SODIUM\THIA
  19. TADALAFIL [Concomitant]
     Active Substance: TADALAFIL
  20. TAMSULOSIN HYDROCHLORIDE [Concomitant]
     Active Substance: TAMSULOSIN HYDROCHLORIDE
  21. ZINC [Concomitant]
     Active Substance: ZINC

REACTIONS (1)
  - Hot flush [Unknown]
